FAERS Safety Report 21315328 (Version 1)
Quarter: 2022Q3

REPORT INFORMATION
  Report Type: Spontaneous
  Country: US (occurrence: None)
  Receive Date: 20220909
  Receipt Date: 20220909
  Transmission Date: 20221027
  Serious: No
  Sender: FDA-Public Use
  Company Number: US-ARIS GLOBAL-202111-2135

PATIENT
  Age: 62 Year
  Sex: Female

DRUGS (14)
  1. OXERVATE [Suspect]
     Active Substance: CENEGERMIN-BKBJ
     Indication: Neurotrophic keratopathy
     Route: 047
     Dates: start: 20211117
  2. ALLEGRA ALLERGY [Concomitant]
     Active Substance: FEXOFENADINE HYDROCHLORIDE
  3. FAMOTIDINE [Concomitant]
     Active Substance: FAMOTIDINE
  4. DIFLUCAN [Concomitant]
     Active Substance: FLUCONAZOLE
  5. TOUJEO [Concomitant]
     Active Substance: INSULIN GLARGINE
  6. REPAGLINIDE [Concomitant]
     Active Substance: REPAGLINIDE
  7. SYSTANE (HYPROMELLOSE 2910 (4000 MPA.S)) [Concomitant]
     Active Substance: HYPROMELLOSE 2910 (4000 MPA.S)
     Dosage: 0.3%-0.4%
  8. NORVASC [Concomitant]
     Active Substance: AMLODIPINE BESYLATE
  9. NITROFURANTOIN [Concomitant]
     Active Substance: NITROFURANTOIN
  10. ZETIA [Concomitant]
     Active Substance: EZETIMIBE
  11. CRESTOR [Concomitant]
     Active Substance: ROSUVASTATIN CALCIUM
  12. LOSARTAN POTASSIUM [Concomitant]
     Active Substance: LOSARTAN POTASSIUM
  13. HUMALOG [Concomitant]
     Active Substance: INSULIN LISPRO
  14. OXYBUTYNIN CHLORIDE [Concomitant]
     Active Substance: OXYBUTYNIN CHLORIDE

REACTIONS (11)
  - Vision blurred [Unknown]
  - Wrong technique in product usage process [Unknown]
  - Accidental overdose [Unknown]
  - Sinus headache [Unknown]
  - Ocular hyperaemia [Unknown]
  - Eye pain [Recovering/Resolving]
  - Eye swelling [Unknown]
  - Foreign body sensation in eyes [Unknown]
  - Product use issue [Unknown]
  - Ocular hyperaemia [Recovering/Resolving]
  - Eye irritation [Recovering/Resolving]

NARRATIVE: CASE EVENT DATE: 20211101
